FAERS Safety Report 7109101-0 (Version None)
Quarter: 2010Q4

REPORT INFORMATION
  Report Type: 
  Country: None (occurrence: None)
  Receive Date: 20101117
  Receipt Date: 20101112
  Transmission Date: 20110411
  Serious: Yes (Other)
  Sender: FDA-Public Use
  Company Number: RU-PFIZER INC-2010147239

PATIENT
  Age: 20 Year
  Sex: Female
  Weight: 66 kg

DRUGS (8)
  1. LYRICA [Suspect]
     Indication: PARTIAL SEIZURES
     Dosage: 150 MG, 2X/DAY
     Route: 048
     Dates: start: 20070626
  2. DEPAKENE [Concomitant]
     Indication: PARTIAL SEIZURES
     Dosage: 600 MG, 2X/DAY
     Route: 048
     Dates: start: 20030101
  3. FINLEPSIN - SLOW RELEASE [Concomitant]
     Indication: PARTIAL SEIZURES
     Dosage: 400 MG, 2X/DAY
     Route: 048
     Dates: start: 19990101, end: 20070418
  4. FINLEPSIN - SLOW RELEASE [Concomitant]
     Dosage: 300 MG, 2X/DAY
     Route: 048
     Dates: start: 20070418, end: 20070626
  5. FINLEPSIN - SLOW RELEASE [Concomitant]
     Dosage: 200 MG, 2X/DAY
     Route: 048
     Dates: start: 20070626, end: 20070716
  6. FINLEPSIN - SLOW RELEASE [Concomitant]
     Dosage: 100 MG, 2X/DAY
     Route: 048
     Dates: start: 20070716, end: 20070924
  7. FOLIC ACID [Concomitant]
     Indication: PREGNANCY
     Dosage: 1 MG, 3X/DAY
     Route: 048
     Dates: start: 20070701, end: 20080301
  8. ELEVIT PRONATAL [Concomitant]
     Indication: PREGNANCY
     Dosage: 1 TABLET PER DAY
     Route: 048
     Dates: start: 20070701, end: 20080301

REACTIONS (5)
  - INSOMNIA [None]
  - NEPHROLITHIASIS [None]
  - PARTIAL SEIZURES WITH SECONDARY GENERALISATION [None]
  - PRE-ECLAMPSIA [None]
  - PYELONEPHRITIS [None]
